FAERS Safety Report 20639106 (Version 1)
Quarter: 2022Q1

REPORT INFORMATION
  Report Type: Spontaneous
  Country: CA (occurrence: CA)
  Receive Date: 20220326
  Receipt Date: 20220326
  Transmission Date: 20220423
  Serious: Yes (Hospitalization, Other)
  Sender: FDA-Public Use
  Company Number: CA-JNJFOC-20220348924

PATIENT
  Age: 50 Year
  Sex: Male

DRUGS (10)
  1. REMICADE [Suspect]
     Active Substance: INFLIXIMAB
     Indication: Crohn^s disease
     Route: 042
  2. ATENOLOL [Concomitant]
     Active Substance: ATENOLOL
  3. AZATHIOPRINE [Concomitant]
     Active Substance: AZATHIOPRINE
  4. CALCIUM [Concomitant]
     Active Substance: CALCIUM
  5. CLOZARIL [Concomitant]
     Active Substance: CLOZAPINE
     Route: 042
  6. CYANOCOBALAMIN [Concomitant]
     Active Substance: CYANOCOBALAMIN
  7. DESOXIMETASONE [Concomitant]
     Active Substance: DESOXIMETASONE
  8. PANTOPRAZOLE [Concomitant]
     Active Substance: PANTOPRAZOLE
     Route: 042
  9. PREDNISONE ACETATE [Concomitant]
     Active Substance: PREDNISONE ACETATE
  10. XARELTO [Concomitant]
     Active Substance: RIVAROXABAN

REACTIONS (8)
  - Intestinal obstruction [Unknown]
  - Decreased appetite [Unknown]
  - Muscle spasms [Unknown]
  - Asthenia [Unknown]
  - Malaise [Unknown]
  - Vomiting [Unknown]
  - Abdominal pain [Unknown]
  - Off label use [Unknown]
